FAERS Safety Report 10249318 (Version 1)
Quarter: 2014Q2

REPORT INFORMATION
  Report Type: Spontaneous
  Country: US (occurrence: US)
  Receive Date: 20140620
  Receipt Date: 20140620
  Transmission Date: 20141212
  Serious: Yes (Hospitalization)
  Sender: FDA-Public Use
  Company Number: US-JNJFOC-20140605271

PATIENT
  Age: 52 Year
  Sex: Female
  Weight: 56.7 kg

DRUGS (4)
  1. DURAGESIC [Suspect]
     Indication: PAIN
     Route: 062
  2. DUROGESIC [Suspect]
     Indication: PAIN
     Route: 062
  3. METHADONE [Suspect]
     Indication: PAIN
     Route: 065
     Dates: end: 201311
  4. OXYCODONE [Concomitant]
     Indication: PAIN
     Route: 048

REACTIONS (9)
  - Thrombosis [Unknown]
  - Pancreatitis [Unknown]
  - Arrhythmia [Unknown]
  - Withdrawal syndrome [Unknown]
  - Visual impairment [Not Recovered/Not Resolved]
  - Therapeutic response decreased [Unknown]
  - Drug effect increased [Unknown]
  - Product quality issue [Unknown]
  - Product packaging issue [Unknown]
